FAERS Safety Report 9198831 (Version 1)
Quarter: 2013Q1

REPORT INFORMATION
  Report Type: Spontaneous
  Country: US (occurrence: None)
  Receive Date: 20130327
  Receipt Date: 20130327
  Transmission Date: 20140127
  Serious: Yes (Other)
  Sender: FDA-Public Use
  Company Number: None

PATIENT
  Age: 15 Year
  Sex: Female
  Weight: 45.36 kg

DRUGS (2)
  1. DROSPIRENONE-ETHINYL ESTRADIOL 3 - 0.02 MG [Suspect]
     Indication: PREMENSTRUAL DYSPHORIC DISORDER
     Dates: start: 20110601, end: 20110630
  2. DROSPIRENONE-ETHINYL ESTRADIOL 3 - 0.02 MG [Suspect]
     Indication: DYSMENORRHOEA
     Dates: start: 20110601, end: 20110630

REACTIONS (1)
  - Product substitution issue [None]
